FAERS Safety Report 21783384 (Version 1)
Quarter: 2022Q4

REPORT INFORMATION
  Report Type: Spontaneous
  Country: US (occurrence: US)
  Receive Date: 20221227
  Receipt Date: 20221227
  Transmission Date: 20230113
  Serious: No
  Sender: FDA-Public Use
  Company Number: US-PFIZER INC-202201389274

PATIENT
  Age: 84 Year
  Sex: Male
  Weight: 90.72 kg

DRUGS (1)
  1. PAXLOVID [Suspect]
     Active Substance: NIRMATRELVIR\RITONAVIR
     Indication: COVID-19 treatment
     Dosage: [PF-07321332 300 MG]/[RITONAVIR 100 MG]; 2X/DAY
     Route: 048
     Dates: start: 20221218

REACTIONS (7)
  - Therapeutic product effect incomplete [Unknown]
  - Fatigue [Unknown]
  - Feeling abnormal [Unknown]
  - Asthenia [Unknown]
  - Malaise [Unknown]
  - Taste disorder [Unknown]
  - Condition aggravated [Unknown]
